FAERS Safety Report 15389059 (Version 2)
Quarter: 2018Q4

REPORT INFORMATION
  Report Type: Report from Study
  Country: None (occurrence: CA)
  Receive Date: 20180917
  Receipt Date: 20181015
  Transmission Date: 20190204
  Serious: Yes (Hospitalization)
  Sender: FDA-Public Use
  Company Number: CA-ABBVIE-18S-028-2485782-00

PATIENT
  Age: 75 Year
  Sex: Male
  Weight: 59.02 kg

DRUGS (1)
  1. DUODOPA [Suspect]
     Active Substance: CARBIDOPA\LEVODOPA
     Indication: PARKINSON^S DISEASE
     Dosage: DOSING MORNING BOLUS : 16  CDR : 4.1 ED : 2
     Route: 050
     Dates: start: 20171129

REACTIONS (3)
  - Arthralgia [Recovering/Resolving]
  - Pain in extremity [Recovering/Resolving]
  - Lumbar spinal stenosis [Unknown]

NARRATIVE: CASE EVENT DATE: 201808
